FAERS Safety Report 15213170 (Version 2)
Quarter: 2020Q1

REPORT INFORMATION
  Report Type: Spontaneous
  Country: US (occurrence: US)
  Receive Date: 20180730
  Receipt Date: 20200320
  Transmission Date: 20200409
  Serious: No
  Sender: FDA-Public Use
  Company Number: US-PFIZER INC-2018304392

PATIENT
  Age: 74 Year
  Sex: Female
  Weight: 78.47 kg

DRUGS (2)
  1. IBRANCE [Suspect]
     Active Substance: PALBOCICLIB
     Indication: BREAST CANCER FEMALE
     Dosage: 100 MG, CYCLIC (ONCE A DAY FOR 21 DAYS TAKES A 7 DAY BREAK)
  2. IBRANCE [Suspect]
     Active Substance: PALBOCICLIB
     Indication: CHEMOTHERAPY

REACTIONS (3)
  - Blood count abnormal [Unknown]
  - Arthritis [Unknown]
  - Product dispensing error [Unknown]
